FAERS Safety Report 5087029-8 (Version None)
Quarter: 2006Q3

REPORT INFORMATION
  Report Type: 
  Country: None (occurrence: None)
  Receive Date: 20060821
  Receipt Date: 20060802
  Transmission Date: 20061208
  Serious: Yes (Hospitalization)
  Sender: FDA-Public Use
  Company Number: 228694

PATIENT
  Age: 63 Year
  Sex: Male

DRUGS (5)
  1. AVASTIN [Suspect]
     Indication: COLORECTAL CANCER
     Dosage: 5 MG/KG, Q2W, INTRAVENOUS
     Route: 042
     Dates: start: 20060614
  2. ERBITUX [Suspect]
     Indication: COLORECTAL CANCER
     Dosage: 250 MG/M2, 1/WEEK, INTRAVENOUS
     Route: 042
     Dates: start: 20060614
  3. OXALIPLATIN (OXALIPLATIN) [Suspect]
     Indication: COLORECTAL CANCER
     Dosage: 85 MG/M2, Q2W, INTRAVENOUS
     Route: 042
     Dates: start: 20060614
  4. LEUCOVORIN CALCIUM [Suspect]
     Indication: COLORECTAL CANCER
     Dosage: 400 MG/M2, Q2W, INTRAVENOUS
     Route: 042
     Dates: start: 20060614
  5. FLUOROURACIL [Suspect]
     Indication: COLORECTAL CANCER
     Dosage: SEE IMAGE
     Route: 042
     Dates: start: 20060614

REACTIONS (6)
  - ADHESION [None]
  - CLOSTRIDIAL INFECTION [None]
  - DIARRHOEA [None]
  - PAIN [None]
  - SMALL INTESTINAL OBSTRUCTION [None]
  - VOMITING [None]
